FAERS Safety Report 8184292-1 (Version None)
Quarter: 2012Q1

REPORT INFORMATION
  Report Type: 
  Country: None (occurrence: None)
  Receive Date: 20120305
  Receipt Date: 20120222
  Transmission Date: 20120608
  Serious: Yes (Other)
  Sender: FDA-Public Use
  Company Number: US-JNJFOC-20120300977

PATIENT
  Sex: Female
  Weight: 117.1 kg

DRUGS (7)
  1. ASPIRIN [Concomitant]
     Indication: PRODUCT USED FOR UNKNOWN INDICATION
     Route: 065
  2. TRAMADOL HCL [Suspect]
     Indication: PRODUCT USED FOR UNKNOWN INDICATION
     Route: 065
  3. SERTRALINE HYDROCHLORIDE [Suspect]
     Indication: BIPOLAR DISORDER
     Route: 065
  4. LITHIUM CARBONATE [Suspect]
     Indication: MOOD SWINGS
     Route: 065
  5. LEVOTHYROXINE SODIUM [Concomitant]
     Indication: THYROID DISORDER
     Route: 065
  6. SERTRALINE HYDROCHLORIDE [Suspect]
     Route: 065
  7. ABILIFY [Suspect]
     Indication: MOOD SWINGS
     Route: 065

REACTIONS (6)
  - BLOOD PRESSURE INCREASED [None]
  - INSOMNIA [None]
  - SUICIDAL IDEATION [None]
  - CEREBROVASCULAR ACCIDENT [None]
  - WEIGHT INCREASED [None]
  - DEPRESSED MOOD [None]
